FAERS Safety Report 11323781 (Version 3)
Quarter: 2015Q4

REPORT INFORMATION
  Report Type: Spontaneous
  Country: DE (occurrence: DE)
  Receive Date: 20150730
  Receipt Date: 20151022
  Transmission Date: 20160304
  Serious: Yes (Other)
  Sender: FDA-Public Use
  Company Number: DE-ROCHE-1613142

PATIENT
  Sex: Female

DRUGS (3)
  1. HERCEPTIN [Suspect]
     Active Substance: TRASTUZUMAB
     Indication: PRODUCT USED FOR UNKNOWN INDICATION
     Dosage: TOTAL OF 53 CYCLES
     Route: 065
     Dates: start: 2006
  2. KADCYLA [Suspect]
     Active Substance: ADO-TRASTUZUMAB EMTANSINE
     Indication: BREAST CANCER METASTATIC
     Route: 065
     Dates: start: 2014
  3. PACLITAXEL. [Concomitant]
     Active Substance: PACLITAXEL
     Indication: BREAST CANCER METASTATIC
     Dosage: TOTAL OF 53 CYCLES
     Route: 065
     Dates: start: 2006

REACTIONS (5)
  - Muscle spasms [Unknown]
  - Metastases to central nervous system [Unknown]
  - Oxygen saturation decreased [Not Recovered/Not Resolved]
  - Nausea [Unknown]
  - Pain [Unknown]

NARRATIVE: CASE EVENT DATE: 2012
